FAERS Safety Report 22644729 (Version 1)
Quarter: 2023Q2

REPORT INFORMATION
  Report Type: Spontaneous
  Country: FR (occurrence: None)
  Receive Date: 20230627
  Receipt Date: 20230627
  Transmission Date: 20230722
  Serious: Yes (Death)
  Sender: FDA-Public Use
  Company Number: FR-Orion Corporation ORION PHARMA-TREX2023-0154

PATIENT
  Age: 63 Year
  Sex: Female

DRUGS (10)
  1. METHOTREXATE SODIUM [Suspect]
     Active Substance: METHOTREXATE SODIUM
     Indication: Eczema
     Dosage: STRENGTH: 10 MG
     Dates: start: 20230405, end: 20230416
  2. FOLIC ACID [Concomitant]
     Active Substance: FOLIC ACID
     Dosage: 2 TABLETS 48 HOURS AFTER MTX
  3. METFORMIN PAMOATE [Concomitant]
     Active Substance: METFORMIN PAMOATE
     Dosage: STRENGTH: 700 MG?1-0-1
  4. ELIQUIS [Concomitant]
     Active Substance: APIXABAN
     Dosage: STRENGTH: 2.5 MG?1-0-1
  5. LERCANIDIPINE HYDROCHLORIDE [Concomitant]
     Active Substance: LERCANIDIPINE HYDROCHLORIDE
     Dosage: STRENGTH: 20 MG
  6. LANTUS [Concomitant]
     Active Substance: INSULIN GLARGINE
     Dosage: 12 TO 14 UI AT NIGHT
  7. PANTOPRAZOLE [Concomitant]
     Active Substance: PANTOPRAZOLE
     Dosage: STRENGTH: 20 MG
  8. BISOPROLOL FUMARATE [Concomitant]
     Active Substance: BISOPROLOL FUMARATE
     Dosage: STRENGTH: 5 MG?1-0-1
  9. CLOPIDOGREL [Concomitant]
     Active Substance: CLOPIDOGREL BISULFATE
     Dosage: STRENGTH: 75 MG?0-1-0
  10. ATORVASTATIN [Concomitant]
     Active Substance: ATORVASTATIN
     Dosage: STRENGTH: 40 MG?0-0-1

REACTIONS (3)
  - Pancytopenia [Fatal]
  - Septic shock [Fatal]
  - Product use in unapproved indication [Unknown]
